FAERS Safety Report 7600086-7 (Version None)
Quarter: 2011Q2

REPORT INFORMATION
  Report Type: 
  Country: None (occurrence: None)
  Receive Date: 20110629
  Receipt Date: 20110616
  Transmission Date: 20111010
  Serious: Yes (Life-Threatening, Hospitalization, Other)
  Sender: FDA-Public Use
  Company Number: 2011MA007667

PATIENT
  Age: 61 Year
  Sex: Female

DRUGS (2)
  1. PHENOBARBITAL TAB [Concomitant]
  2. PHENYTOIN [Suspect]
     Indication: STATUS EPILEPTICUS

REACTIONS (5)
  - SEPSIS [None]
  - RENAL FAILURE [None]
  - TOXIC EPIDERMAL NECROLYSIS [None]
  - RESPIRATORY FAILURE [None]
  - HYPOALBUMINAEMIA [None]
